FAERS Safety Report 12666316 (Version 1)
Quarter: 2016Q3

REPORT INFORMATION
  Report Type: Report from Study
  Country: BE (occurrence: BE)
  Receive Date: 20160818
  Receipt Date: 20160818
  Transmission Date: 20161109
  Serious: Yes (Life-Threatening, Hospitalization)
  Sender: FDA-Public Use
  Company Number: BE-ASTRAZENECA-2016SE87821

PATIENT
  Age: 86 Year
  Sex: Male

DRUGS (6)
  1. ACETYLSALICYLIC ACID [Suspect]
     Active Substance: ASPIRIN
     Indication: ARTERIAL THROMBOSIS
     Dosage: MAINTENANCE THERAPY 80 MG DAILY (NON AZ PRODUCT)
     Route: 048
     Dates: end: 20150827
  2. PANTOMED [Concomitant]
     Active Substance: DEXPANTHENOL
     Dosage: 40 MG
     Route: 048
     Dates: start: 201606
  3. ZANIDIP [Concomitant]
     Active Substance: LERCANIDIPINE HYDROCHLORIDE
     Dosage: 20 MG
  4. TICAGRELOR [Suspect]
     Active Substance: TICAGRELOR
     Indication: ARTERIAL THROMBOSIS
     Route: 048
     Dates: start: 20150727, end: 20160612
  5. CORUNO [Concomitant]
     Active Substance: MOLSIDOMINE
     Dosage: 16 MG
     Route: 048
     Dates: start: 20150526
  6. ATORVASTATIN [Concomitant]
     Active Substance: ATORVASTATIN
     Dosage: 20 MG
     Route: 048

REACTIONS (1)
  - Pulmonary embolism [Recovered/Resolved]

NARRATIVE: CASE EVENT DATE: 20160612
